FAERS Safety Report 6703679-4 (Version None)
Quarter: 2010Q2

REPORT INFORMATION
  Report Type: 
  Country: None (occurrence: None)
  Receive Date: 20100430
  Receipt Date: 20100427
  Transmission Date: 20101027
  Serious: Yes (Death)
  Sender: FDA-Public Use
  Company Number: PHHY2010BR27190

PATIENT
  Sex: Male

DRUGS (1)
  1. ZELMAC [Suspect]
     Dosage: 6 MG
     Route: 048

REACTIONS (1)
  - ACCIDENTAL DEATH [None]
